FAERS Safety Report 6155123-6 (Version None)
Quarter: 2009Q2

REPORT INFORMATION
  Report Type: 
  Country: None (occurrence: None)
  Receive Date: 20090415
  Receipt Date: 20071213
  Transmission Date: 20091009
  Serious: Yes (Hospitalization)
  Sender: FDA-Public Use
  Company Number: US-ASTRAZENECA-2007UW18673

PATIENT
  Age: 20644 Day
  Sex: Female

DRUGS (14)
  1. SEROQUEL [Suspect]
     Route: 048
  2. SEROQUEL [Suspect]
     Dosage: 25-600 MG
     Route: 048
     Dates: start: 20010326
  3. ALBUTEROL [Concomitant]
  4. BUSPAR [Concomitant]
  5. GEODON [Concomitant]
  6. PROZAC [Concomitant]
  7. KLONOPIN [Concomitant]
  8. DELTASONE [Concomitant]
  9. ZYPREXA [Concomitant]
  10. ALBILIFY [Concomitant]
  11. TRAZODONE HCL [Concomitant]
  12. LIPITOR [Concomitant]
  13. ENALAPRIL [Concomitant]
  14. FUROSEMIDE [Concomitant]

REACTIONS (19)
  - AGITATION [None]
  - BREAST MASS [None]
  - CELLULITIS [None]
  - CHRONIC OBSTRUCTIVE PULMONARY DISEASE [None]
  - DIABETES MELLITUS [None]
  - DYSPNOEA [None]
  - EAR INFECTION [None]
  - EAR PAIN [None]
  - GASTROENTERITIS VIRAL [None]
  - HALLUCINATION, AUDITORY [None]
  - HALLUCINATION, VISUAL [None]
  - ONYCHOMYCOSIS [None]
  - PAIN IN JAW [None]
  - POOR QUALITY SLEEP [None]
  - RHINITIS ALLERGIC [None]
  - TACHYPHRENIA [None]
  - TOOTH INFECTION [None]
  - UPPER RESPIRATORY TRACT INFECTION [None]
  - VISION BLURRED [None]
